FAERS Safety Report 7628481-0 (Version None)
Quarter: 2011Q3

REPORT INFORMATION
  Report Type: 
  Country: None (occurrence: None)
  Receive Date: 20110705
  Receipt Date: 20110623
  Transmission Date: 20111222
  Serious: Yes (Hospitalization)
  Sender: FDA-Public Use
  Company Number: 20100614CINRY1516

PATIENT
  Age: 11 Year
  Sex: Female

DRUGS (2)
  1. CINRYZE [Suspect]
     Indication: PROPHYLAXIS
     Dosage: 1 IN 4 D, INTRAVENOUS; 1000 UNIT, 3 IN 1 WK, INTRAVENOUS
     Route: 042
     Dates: end: 20100601
  2. CINRYZE [Suspect]
     Indication: HEREDITARY ANGIOEDEMA
     Dosage: 1 IN 4 D, INTRAVENOUS; 1000 UNIT, 3 IN 1 WK, INTRAVENOUS
     Route: 042
     Dates: end: 20100601

REACTIONS (8)
  - EAR INFECTION [None]
  - SWELLING FACE [None]
  - HEREDITARY ANGIOEDEMA [None]
  - WEIGHT DECREASED [None]
  - DIARRHOEA [None]
  - ABDOMINAL PAIN [None]
  - CONDITION AGGRAVATED [None]
  - VOMITING [None]
